FAERS Safety Report 7069633-0 (Version None)
Quarter: 2010Q4

REPORT INFORMATION
  Report Type: 
  Country: None (occurrence: None)
  Receive Date: 20101028
  Receipt Date: 20100415
  Transmission Date: 20110411
  Serious: No
  Sender: FDA-Public Use
  Company Number: US-WYE-H14749010

PATIENT
  Sex: Female

DRUGS (4)
  1. PROTONIX [Suspect]
     Indication: CHEST DISCOMFORT
     Dates: start: 20100323
  2. ETHINYLESTRADIOL/NORGESTREL [Concomitant]
  3. ATIVAN [Concomitant]
  4. MOBIC [Concomitant]

REACTIONS (1)
  - CHROMATURIA [None]
